FAERS Safety Report 9388051 (Version 1)
Quarter: 2013Q3

REPORT INFORMATION
  Report Type: Spontaneous
  Country: US (occurrence: US)
  Receive Date: 20130708
  Receipt Date: 20130708
  Transmission Date: 20140515
  Serious: No
  Sender: FDA-Public Use
  Company Number: US-BAYER-2013-080641

PATIENT
  Sex: Female

DRUGS (1)
  1. CLIMARA [Suspect]
     Dosage: UNK
     Route: 062

REACTIONS (5)
  - Mood altered [None]
  - Drug ineffective [None]
  - Hot flush [None]
  - Night sweats [None]
  - Product adhesion issue [None]
